FAERS Safety Report 17831237 (Version 1)
Quarter: 2020Q2

REPORT INFORMATION
  Report Type: Spontaneous
  Country: IT (occurrence: IT)
  Receive Date: 20200527
  Receipt Date: 20200527
  Transmission Date: 20200714
  Serious: Yes (Hospitalization, Other)
  Sender: FDA-Public Use
  Company Number: IT-GLAXOSMITHKLINE-IT2020GSK086220

PATIENT
  Age: 47 Year
  Sex: Male

DRUGS (3)
  1. BISOPROLOL [Concomitant]
     Active Substance: BISOPROLOL
     Indication: ATRIAL FIBRILLATION
     Dosage: 3.5 MG
  2. PROPAFENONE. [Suspect]
     Active Substance: PROPAFENONE
     Indication: ATRIAL FIBRILLATION
     Dosage: UNK
     Dates: start: 201901
  3. FLECAINIDE [Suspect]
     Active Substance: FLECAINIDE
     Indication: ATRIAL FIBRILLATION
     Dosage: 100 MG
     Dates: end: 201901

REACTIONS (18)
  - Acute generalised exanthematous pustulosis [Recovering/Resolving]
  - Papule [Recovering/Resolving]
  - Eosinophilia [Recovering/Resolving]
  - Eczema [Recovering/Resolving]
  - Pustule [Recovering/Resolving]
  - Skin lesion [Recovering/Resolving]
  - C-reactive protein increased [Recovering/Resolving]
  - Drug ineffective [Unknown]
  - Dermatitis exfoliative generalised [Recovering/Resolving]
  - Neutrophilia [Recovering/Resolving]
  - Abscess [Recovering/Resolving]
  - Rash erythematous [Recovering/Resolving]
  - Neutrophilic dermatosis [Recovering/Resolving]
  - Rash papular [Recovering/Resolving]
  - Pyrexia [Recovering/Resolving]
  - Cutaneous vasculitis [Recovering/Resolving]
  - Fatigue [Recovering/Resolving]
  - Pustular psoriasis [Recovering/Resolving]

NARRATIVE: CASE EVENT DATE: 201901
